FAERS Safety Report 4770967-0 (Version None)
Quarter: 2005Q3

REPORT INFORMATION
  Report Type: 
  Country: None (occurrence: None)
  Receive Date: 20050914
  Receipt Date: 20050830
  Transmission Date: 20060218
  Serious: Yes (Hospitalization)
  Sender: FDA-Public Use
  Company Number: DE_050916829

PATIENT
  Age: 52 Year
  Sex: Male
  Weight: 75 kg

DRUGS (1)
  1. HUMULIN R [Suspect]
     Indication: DIABETES MELLITUS
     Dosage: 24 IU
     Dates: start: 20050501, end: 20050801

REACTIONS (6)
  - ASCITES [None]
  - LIVER FUNCTION TEST ABNORMAL [None]
  - OEDEMA [None]
  - PLEURAL EFFUSION [None]
  - SKIN REACTION [None]
  - WEIGHT INCREASED [None]
